FAERS Safety Report 4316119-X (Version None)
Quarter: 2004Q1

REPORT INFORMATION
  Report Type: 
  Country: None (occurrence: None)
  Receive Date: 20040310
  Receipt Date: 20040225
  Transmission Date: 20041129
  Serious: Yes (Death, Hospitalization, Other)
  Sender: FDA-Public Use
  Company Number: 2003018320

PATIENT
  Age: 76 Year
  Sex: Male

DRUGS (10)
  1. NEURONTIN [Suspect]
     Indication: HERPES ZOSTER
     Dosage: 900 MG (DAILY), ORAL
     Route: 048
     Dates: start: 20020901, end: 20021120
  2. VFEND [Suspect]
     Indication: FUNGAL INFECTION
     Dosage: 600 MG (DAILY), INTRAVENOUS
     Route: 042
     Dates: start: 20021211, end: 20021213
  3. ZOLOFT [Suspect]
     Indication: ILL-DEFINED DISORDER
     Dates: start: 20030311, end: 20030314
  4. CITALOPRAM HYDROBROMIDE (CITALOPRAM HYDROBROMIDE) [Suspect]
     Indication: DEPRESSION
     Dates: start: 20030214, end: 20030215
  5. VANCOMYCIN HYDROCHLORIDE (VANCYOMYCIN HYDROCHLORIDE) [Concomitant]
  6. FLUCONAZOLE [Concomitant]
  7. MEROPENEM (MEROPENEM) [Concomitant]
  8. LEVOFLOXACIN [Concomitant]
  9. ACETYLSALICYLIC ACID SRT [Concomitant]
  10. CLINDAMYCIN HYDROCHLORIDE [Concomitant]

REACTIONS (17)
  - ABNORMAL BEHAVIOUR [None]
  - ANXIETY [None]
  - ARTERIOSCLEROSIS [None]
  - ATRIOVENTRICULAR BLOCK SECOND DEGREE [None]
  - BONE MARROW DEPRESSION [None]
  - BONE MARROW DISORDER [None]
  - C-REACTIVE PROTEIN INCREASED [None]
  - CARDIAC ENZYMES INCREASED [None]
  - EXANTHEM [None]
  - HALLUCINATION, VISUAL [None]
  - HYPONATRAEMIA [None]
  - MYOCARDIAL INFARCTION [None]
  - PULMONARY OEDEMA [None]
  - PYREXIA [None]
  - STAPHYLOCOCCAL INFECTION [None]
  - SYNCOPE [None]
  - UROSEPSIS [None]
